FAERS Safety Report 8339061-6 (Version None)
Quarter: 2012Q2

REPORT INFORMATION
  Report Type: 
  Country: None (occurrence: None)
  Receive Date: 20120502
  Receipt Date: 20120418
  Transmission Date: 20120825
  Serious: Yes (Other)
  Sender: FDA-Public Use
  Company Number: 1203-149

PATIENT
  Age: 74 Year
  Sex: Female

DRUGS (10)
  1. TIMOLOL MALEATE [Concomitant]
  2. EYLEA [Suspect]
     Dosage: 2 MG, INTRAVITREAL
     Dates: start: 20120229
  3. ICAPS [Concomitant]
  4. RESTASIS [Concomitant]
  5. ASCORBIC ACID [Concomitant]
  6. VITAMIN D [Concomitant]
  7. OMEPRAZOLE [Concomitant]
  8. ASPIRIN [Concomitant]
  9. LISINOPRIL [Concomitant]
  10. DIPYRIDAMOLE [Concomitant]

REACTIONS (2)
  - ANTERIOR CHAMBER INFLAMMATION [None]
  - VISION BLURRED [None]
